FAERS Safety Report 23918814 (Version 1)
Quarter: 2024Q2

REPORT INFORMATION
  Report Type: Other
  Country: EG (occurrence: None)
  Receive Date: 20240530
  Receipt Date: 20240530
  Transmission Date: 20240715
  Serious: Yes (Death, Life-Threatening)
  Sender: FDA-Public Use
  Company Number: EG-ROCHE-3568992

PATIENT
  Age: 32 Year
  Sex: Male

DRUGS (2)
  1. MABTHERA [Suspect]
     Active Substance: RITUXIMAB
     Indication: Lymphoma
     Route: 065
     Dates: start: 20221121, end: 20240504
  2. POLIVY [Concomitant]
     Active Substance: POLATUZUMAB VEDOTIN-PIIQ
     Route: 065

REACTIONS (3)
  - Immunodeficiency [Unknown]
  - COVID-19 [Fatal]
  - Diabetes mellitus [Not Recovered/Not Resolved]

NARRATIVE: CASE EVENT DATE: 20240201
